FAERS Safety Report 23934988 (Version 1)
Quarter: 2024Q2

REPORT INFORMATION
  Report Type: Spontaneous
  Country: NL (occurrence: NL)
  Receive Date: 20240604
  Receipt Date: 20240604
  Transmission Date: 20240716
  Serious: Yes (Other)
  Sender: FDA-Public Use
  Company Number: None

PATIENT

DRUGS (1)
  1. ZYBAN [Suspect]
     Active Substance: BUPROPION HYDROCHLORIDE
     Indication: Product used for unknown indication
     Dosage: 150 MG, BID (1 DOSE TWICE A DAY)
     Route: 065
     Dates: start: 20240503, end: 20240515

REACTIONS (5)
  - Haematochezia [Recovering/Resolving]
  - Abnormal behaviour [Recovering/Resolving]
  - Hyperhidrosis [Recovering/Resolving]
  - Constipation [Recovering/Resolving]
  - Vision blurred [Recovering/Resolving]

NARRATIVE: CASE EVENT DATE: 20240501
